FAERS Safety Report 16139656 (Version 1)
Quarter: 2019Q1

REPORT INFORMATION
  Report Type: Spontaneous
  Country: US (occurrence: US)
  Receive Date: 20190330
  Receipt Date: 20190330
  Transmission Date: 20190418
  Serious: No
  Sender: FDA-Public Use
  Company Number: US-DOLLAR GENERAL PREMIER BRANDS OF AMERICA INC.-2064939

PATIENT
  Sex: Female

DRUGS (1)
  1. SALICYLIC ACID. [Suspect]
     Active Substance: SALICYLIC ACID
     Indication: SKIN PAPILLOMA
     Route: 061
     Dates: start: 20190311, end: 20190314

REACTIONS (1)
  - Abscess limb [Recovering/Resolving]

NARRATIVE: CASE EVENT DATE: 20190311
